FAERS Safety Report 5307705-9 (Version None)
Quarter: 2007Q2

REPORT INFORMATION
  Report Type: 
  Country: None (occurrence: None)
  Receive Date: 20070419
  Receipt Date: 20070402
  Transmission Date: 20071010
  Serious: Yes (Hospitalization, Other)
  Sender: FDA-Public Use
  Company Number: 16214

PATIENT
  Age: 71 Year
  Sex: Female

DRUGS (9)
  1. NIPENT [Suspect]
     Indication: LYMPHOMA
     Dosage: 4 MG Q3W IV
     Route: 042
     Dates: start: 20060918, end: 20061030
  2. VINCRISTINE [Suspect]
     Indication: LYMPHOMA
     Dosage: 1 MG Q3W IV
     Route: 042
     Dates: start: 20060427, end: 20061113
  3. CYCLOPHOSPHAMIDE [Suspect]
  4. LIPITOR /01326101/. MFR:  NOT SPECIFIED [Concomitant]
  5. FOSAMAX [Concomitant]
  6. COUMADIN. MFR:  NOT SPECIFIED [Concomitant]
  7. TOPRAL. MFR:  NOT SPECIFIED [Concomitant]
  8. ACYCLOVIR [Concomitant]
  9. BACTRIM DS [Concomitant]

REACTIONS (7)
  - ATRIAL FIBRILLATION [None]
  - BALANCE DISORDER [None]
  - MENTAL STATUS CHANGES [None]
  - NAUSEA [None]
  - NEUROLOGICAL SYMPTOM [None]
  - PLEURAL EFFUSION [None]
  - PULMONARY OEDEMA [None]
